FAERS Safety Report 6067471-9 (Version None)
Quarter: 2009Q1

REPORT INFORMATION
  Report Type: 
  Country: None (occurrence: None)
  Receive Date: 20090205
  Receipt Date: 20090126
  Transmission Date: 20090719
  Serious: Yes (Death)
  Sender: FDA-Public Use
  Company Number: US-ELI_LILLY_AND_COMPANY-US200901005304

PATIENT
  Age: 40 Year
  Sex: Female

DRUGS (7)
  1. ZYPREXA [Suspect]
  2. CODEINE [Concomitant]
  3. DIPHENHYDRAMINE HCL [Concomitant]
  4. CYCLOBENZAPRINE [Concomitant]
  5. TRAZODONE HCL [Concomitant]
  6. CITALOPRAM [Concomitant]
  7. DEXTROMETHORPHAN HYDROBROMIDE [Concomitant]

REACTIONS (1)
  - COMPLETED SUICIDE [None]
